FAERS Safety Report 8307669 (Version 6)
Quarter: 2014Q1

REPORT INFORMATION
  Report Type: Spontaneous
  Country: US (occurrence: US)
  Receive Date: 20111222
  Receipt Date: 20140108
  Transmission Date: 20141002
  Serious: Yes (Other)
  Sender: FDA-Public Use
  Company Number: US-ROCHE-803010

PATIENT
  Age: 19 Year
  Sex: Female
  Weight: 56.75 kg

DRUGS (11)
  1. ACCUTANE [Suspect]
     Indication: ACNE CYSTIC
     Dosage: FOR 1 MONTH
     Route: 048
  2. ACCUTANE [Suspect]
     Route: 048
     Dates: start: 20021211, end: 200308
  3. ACCUTANE [Suspect]
     Route: 048
     Dates: start: 200410, end: 200508
  4. ACCUTANE [Suspect]
     Route: 048
  5. ACCUTANE [Suspect]
     Route: 048
  6. ACCUTANE [Suspect]
     Route: 048
  7. ACCUTANE [Suspect]
     Route: 048
     Dates: start: 20080701, end: 200810
  8. AMNESTEEM [Suspect]
     Indication: ACNE CYSTIC
     Route: 065
     Dates: start: 20041228
  9. AMNESTEEM [Suspect]
     Dosage: FREQUENCY INCREASED
     Route: 065
     Dates: start: 20050125
  10. PRAVASTATIN [Concomitant]
     Indication: BLOOD CHOLESTEROL INCREASED
  11. BACTRIM [Concomitant]

REACTIONS (12)
  - Colitis ulcerative [Unknown]
  - Irritable bowel syndrome [Unknown]
  - Inflammatory bowel disease [Unknown]
  - Gastrointestinal haemorrhage [Unknown]
  - Depression [Unknown]
  - Dry skin [Unknown]
  - Chapped lips [Unknown]
  - Acne [Recovered/Resolved]
  - Rash [Recovered/Resolved]
  - Haemorrhoids [Unknown]
  - Tendonitis [Unknown]
  - Ingrowing nail [Unknown]
